FAERS Safety Report 6500511-9 (Version None)
Quarter: 2009Q4

REPORT INFORMATION
  Report Type: 
  Country: None (occurrence: None)
  Receive Date: 20091216
  Receipt Date: 20091209
  Transmission Date: 20100525
  Serious: Yes (Other)
  Sender: FDA-Public Use
  Company Number: US-BRISTOL-MYERS SQUIBB COMPANY-14889786

PATIENT
  Sex: Female

DRUGS (2)
  1. IXEMPRA KIT [Suspect]
  2. AVASTIN [Suspect]

REACTIONS (2)
  - CONDITION AGGRAVATED [None]
  - GASTROINTESTINAL PERFORATION [None]
